FAERS Safety Report 5444850-1 (Version None)
Quarter: 2007Q3

REPORT INFORMATION
  Report Type: 
  Country: None (occurrence: None)
  Receive Date: 20070906
  Receipt Date: 20070404
  Transmission Date: 20080115
  Serious: No
  Sender: FDA-Public Use
  Company Number: A0645982A

PATIENT
  Age: 57 Year
  Sex: Female

DRUGS (9)
  1. REQUIP [Suspect]
     Indication: RESTLESS LEGS SYNDROME
     Dosage: 1PUFF AT NIGHT
     Route: 048
  2. ACTOS [Concomitant]
  3. BYETTA [Concomitant]
  4. LISINOPRIL [Concomitant]
  5. LIPITOR [Concomitant]
  6. PLAQUENIL [Concomitant]
  7. GLUCOPHAGE [Concomitant]
  8. BUPROPION HCL [Concomitant]
  9. LANTUS [Concomitant]

REACTIONS (2)
  - COUGH [None]
  - VOMITING [None]
